FAERS Safety Report 19821462 (Version 1)
Quarter: 2021Q3

REPORT INFORMATION
  Report Type: Spontaneous
  Country: GB (occurrence: GB)
  Receive Date: 20210913
  Receipt Date: 20210913
  Transmission Date: 20211014
  Serious: Yes (Other)
  Sender: FDA-Public Use
  Company Number: GB-ACCORD-238030

PATIENT
  Age: 57 Year
  Sex: Female
  Weight: 69.85 kg

DRUGS (1)
  1. AMLODIPINE [Suspect]
     Active Substance: AMLODIPINE BESYLATE
     Indication: HYPERTENSION
     Dosage: 5MLS
     Route: 048
     Dates: start: 20210702, end: 20210824

REACTIONS (5)
  - Joint swelling [Recovering/Resolving]
  - Medication error [Unknown]
  - Alopecia [Not Recovered/Not Resolved]
  - Gingival bleeding [Recovering/Resolving]
  - Skin burning sensation [Recovered/Resolved]

NARRATIVE: CASE EVENT DATE: 20210710
